FAERS Safety Report 18669981 (Version 2)
Quarter: 2021Q1

REPORT INFORMATION
  Report Type: Spontaneous
  Country: CN (occurrence: CN)
  Receive Date: 20201228
  Receipt Date: 20210105
  Transmission Date: 20210419
  Serious: Yes (Other)
  Sender: FDA-Public Use
  Company Number: CN-ABBVIE-20K-035-3702142-00

PATIENT
  Age: 72 Year
  Sex: Male

DRUGS (11)
  1. METHYLPREDNISOLONE. [Concomitant]
     Active Substance: METHYLPREDNISOLONE
     Indication: ADRENOCORTICAL STEROID THERAPY
     Dates: start: 20200202, end: 20200207
  2. METOPROLOL. [Concomitant]
     Active Substance: METOPROLOL
     Indication: HYPERTENSION
  3. PIPERACILLIN/TAZOBACTAM [Concomitant]
     Active Substance: PIPERACILLIN SODIUM\TAZOBACTAM SODIUM
     Indication: ANTIBIOTIC THERAPY
     Route: 042
     Dates: start: 20200202, end: 20200314
  4. GLUTATHIONE [Concomitant]
     Active Substance: GLUTATHIONE
     Indication: PROPHYLAXIS
  5. LOW MOLECULAR WEIGHT HEPARIN [Concomitant]
     Active Substance: UNSPECIFIED INGREDIENT
     Indication: ANTICOAGULANT THERAPY
  6. INTERFERON HUMAN [Suspect]
     Active Substance: INTERFERON
     Indication: COVID-19
     Route: 065
     Dates: start: 20200202, end: 20200214
  7. LOPINAVIR/RITONAVIR [Suspect]
     Active Substance: LOPINAVIR\RITONAVIR
     Indication: COVID-19
     Route: 048
     Dates: start: 20200202, end: 20200214
  8. IMMUNE GLOBULIN (IMMUNOGLOBULINS NOS) [Concomitant]
     Active Substance: IMMUNE GLOBULIN NOS
     Indication: PRODUCT USED FOR UNKNOWN INDICATION
     Dates: start: 20200208, end: 20200210
  9. INSULIN [Concomitant]
     Active Substance: INSULIN NOS
     Indication: TYPE 2 DIABETES MELLITUS
  10. IMMUNE GLOBULIN (IMMUNOGLOBULINS NOS) [Concomitant]
     Active Substance: IMMUNE GLOBULIN NOS
     Dates: start: 20200224, end: 20200228
  11. METHYLPREDNISOLONE. [Concomitant]
     Active Substance: METHYLPREDNISOLONE
     Dates: start: 20200310, end: 20200314

REACTIONS (3)
  - Condition aggravated [Unknown]
  - Off label use [Unknown]
  - Drug ineffective for unapproved indication [Unknown]

NARRATIVE: CASE EVENT DATE: 202002
